APPROVED DRUG PRODUCT: FLUOCINONIDE
Active Ingredient: FLUOCINONIDE
Strength: 0.1%
Dosage Form/Route: CREAM;TOPICAL
Application: A211758 | Product #001
Applicant: PAI HOLDINGS LLC DBA PHARMACEUTICAL ASSOCIATES INC
Approved: Apr 3, 2019 | RLD: No | RS: No | Type: DISCN